FAERS Safety Report 6591775-4 (Version None)
Quarter: 2010Q1

REPORT INFORMATION
  Report Type: 
  Country: None (occurrence: None)
  Receive Date: 20100221
  Receipt Date: 20090611
  Transmission Date: 20100710
  Serious: No
  Sender: FDA-Public Use
  Company Number: US-ALLERGAN-0908180US

PATIENT

DRUGS (2)
  1. BOTOX COSMETIC [Suspect]
     Indication: DRUG USE FOR UNKNOWN INDICATION
     Dosage: 50 UNITS, SINGLE
     Route: 030
  2. BOTOX COSMETIC [Suspect]
     Dosage: 25 UNITS, SINGLE
     Route: 030

REACTIONS (2)
  - DYSPHAGIA [None]
  - THERAPEUTIC RESPONSE DECREASED [None]
